FAERS Safety Report 7242933-7 (Version None)
Quarter: 2011Q1

REPORT INFORMATION
  Report Type: 
  Country: None (occurrence: None)
  Receive Date: 20110125
  Receipt Date: 20110114
  Transmission Date: 20110831
  Serious: Yes (Other)
  Sender: FDA-Public Use
  Company Number: US-NOVOPROD-303167

PATIENT
  Sex: Male
  Weight: 122.45 kg

DRUGS (1)
  1. NOVOLOG MIX 70/30 [Suspect]
     Indication: INSULIN-REQUIRING TYPE 2 DIABETES MELLITUS
     Dosage: SLIDING SCALE
     Route: 058
     Dates: start: 20080701, end: 20110111

REACTIONS (7)
  - INSOMNIA [None]
  - DYSPNOEA [None]
  - PAIN [None]
  - WEIGHT INCREASED [None]
  - WHEEZING [None]
  - VISION BLURRED [None]
  - FATIGUE [None]
